FAERS Safety Report 19513052 (Version 1)
Quarter: 2021Q3

REPORT INFORMATION
  Report Type: Spontaneous
  Country: US (occurrence: US)
  Receive Date: 20210709
  Receipt Date: 20210709
  Transmission Date: 20211014
  Serious: Yes (Other)
  Sender: FDA-Public Use
  Company Number: US-APOTEX-2021AP017000

PATIENT
  Sex: Male

DRUGS (4)
  1. 6?MP [Suspect]
     Active Substance: MERCAPTOPURINE
     Indication: ACUTE LYMPHOCYTIC LEUKAEMIA
     Dosage: 87 MILLIGRAM/SQ. METER, QD
     Route: 065
  2. METHOTREXATE. [Concomitant]
     Active Substance: METHOTREXATE
     Indication: PRODUCT USED FOR UNKNOWN INDICATION
     Dosage: UNK
     Route: 065
  3. ALLOPURINOL. [Suspect]
     Active Substance: ALLOPURINOL
     Indication: DRUG TOXICITY PROPHYLAXIS
     Dosage: 50 MILLIGRAM, QD (33 MG/M2/DAY)
     Route: 065
  4. 6?MP [Suspect]
     Active Substance: MERCAPTOPURINE
     Dosage: 17 MILLIGRAM/SQ. METER, QD (175 MILLIGRAMS PER WEEK)
     Route: 065

REACTIONS (6)
  - Abdominal pain [Recovered/Resolved]
  - Thrombocytopenia [Recovered/Resolved]
  - Splenomegaly [Recovered/Resolved]
  - Blood bilirubin increased [Recovered/Resolved]
  - Toxicity to various agents [Recovered/Resolved]
  - Alanine aminotransferase increased [Recovered/Resolved]
